FAERS Safety Report 23100385 (Version 2)
Quarter: 2023Q4

REPORT INFORMATION
  Report Type: Spontaneous
  Country: None (occurrence: US)
  Receive Date: 20231024
  Receipt Date: 20231130
  Transmission Date: 20240110
  Serious: Yes (Disabling)
  Sender: FDA-Public Use
  Company Number: US-Imprimis NJOF, LLC-2147406

PATIENT
  Sex: Female

DRUGS (1)
  1. MOXIFLOXACIN\NEPAFENAC\PREDNISOLONE ACETATE [Suspect]
     Active Substance: MOXIFLOXACIN\NEPAFENAC\PREDNISOLONE ACETATE
     Route: 047

REACTIONS (1)
  - Syncope [Recovered/Resolved]
